FAERS Safety Report 9205728 (Version 2)
Quarter: 2013Q2

REPORT INFORMATION
  Report Type: Spontaneous
  Country: FR (occurrence: None)
  Receive Date: 20130401
  Receipt Date: 20130628
  Transmission Date: 20140414
  Serious: Yes (Death, Hospitalization)
  Sender: FDA-Public Use
  Company Number: SYM-2013-02146

PATIENT
  Age: 75 Year
  Sex: Male

DRUGS (16)
  1. FLAGYL [Suspect]
     Indication: ANTIBIOTIC THERAPY
     Dates: end: 20120923
  2. CYMEVAN [Suspect]
     Indication: PRODUCT USED FOR UNKNOWN INDICATION
  3. CANCIDAS [Suspect]
     Indication: PRODUCT USED FOR UNKNOWN INDICATION
  4. EUPANTOL [Suspect]
     Indication: PRODUCT USED FOR UNKNOWN INDICATION
  5. CEFTAZIDIME [Suspect]
     Indication: PRODUCT USED FOR UNKNOWN INDICATION
  6. AMIKACIN (AMIKACIN) [Concomitant]
  7. LILNEZOLID (LINEZOLID) [Concomitant]
  8. NOREPINEPHRINE (NOREPINEPHRINE) [Concomitant]
  9. METHYLPREDNISOLONE (METHYLPREDNISOLONE) [Concomitant]
  10. ALFENTANIL (ALFENTANIL) [Concomitant]
  11. PIPERACILLIN (PIPERACILLIN) [Concomitant]
  12. ACICLOVIR  (ACICLOVIR) [Concomitant]
  13. TAZOCILLINE [Concomitant]
  14. AMIKLIN (AMIKACIN) [Concomitant]
  15. CIFLOX (CIPROFLOXACIN) (CIPROFLOXACIN) [Concomitant]
  16. VANCOMYCINE (VANCOMYCIN HYDROCHLORIDE) [Concomitant]

REACTIONS (3)
  - Toxic epidermal necrolysis [None]
  - Intestinal anastomosis [None]
  - Surgical stapling [None]
